FAERS Safety Report 6165140-8 (Version None)
Quarter: 2009Q2

REPORT INFORMATION
  Report Type: 
  Country: None (occurrence: None)
  Receive Date: 20090421
  Receipt Date: 20090421
  Transmission Date: 20091009
  Serious: Yes (Disabling, Other)
  Sender: FDA-Public Use
  Company Number: None

PATIENT
  Age: 9 Year
  Sex: Male
  Weight: 25.5829 kg

DRUGS (2)
  1. ABILIFY [Suspect]
     Indication: AFFECTIVE DISORDER
     Dosage: 1 PILL 2 X DAY PO
     Route: 048
     Dates: start: 20090407, end: 20090413
  2. ABILIFY [Suspect]
     Indication: BIPOLAR DISORDER
     Dosage: 1 PILL 2 X DAY PO
     Route: 048
     Dates: start: 20090407, end: 20090413

REACTIONS (6)
  - CONVULSION [None]
  - DISSOCIATION [None]
  - DYSTONIA [None]
  - PARALYSIS [None]
  - RESTLESS LEGS SYNDROME [None]
  - TIC [None]
